FAERS Safety Report 8595656-6 (Version None)
Quarter: 2012Q3

REPORT INFORMATION
  Report Type: 
  Country: None (occurrence: None)
  Receive Date: 20120815
  Receipt Date: 20120801
  Transmission Date: 20120928
  Serious: Yes (Hospitalization, Congenital Anomaly, Other)
  Sender: FDA-Public Use
  Company Number: US-PFIZER INC-2012197372

PATIENT

DRUGS (6)
  1. TOPIRAMATE [Suspect]
     Dosage: 100 MG, 3X/DAY
     Route: 064
     Dates: start: 20070116, end: 20070701
  2. FLEXERIL [Suspect]
     Dosage: 10 MG, UNK
     Route: 064
  3. IBUPROFEN [Suspect]
     Dosage: 600 MG, 3X/DAY
     Route: 064
  4. FOLIC ACID [Concomitant]
     Route: 064
  5. ZANTAC [Suspect]
     Dosage: 150 MG, 2X/DAY
     Route: 064
  6. MIRALAX [Suspect]
     Dosage: UNK
     Route: 064

REACTIONS (5)
  - VENTRICULAR SEPTAL DEFECT [None]
  - ATRIAL SEPTAL DEFECT [None]
  - MATERNAL EXPOSURE TIMING UNSPECIFIED [None]
  - PATENT DUCTUS ARTERIOSUS [None]
  - TRANSPOSITION OF THE GREAT VESSELS [None]
